FAERS Safety Report 5716579-3 (Version None)
Quarter: 2008Q2

REPORT INFORMATION
  Report Type: 
  Country: None (occurrence: None)
  Receive Date: 20080424
  Receipt Date: 20080417
  Transmission Date: 20081010
  Serious: Yes (Other)
  Sender: FDA-Public Use
  Company Number: US-ELI_LILLY_AND_COMPANY-US200804004650

PATIENT
  Sex: Female

DRUGS (4)
  1. HUMULIN N [Suspect]
     Dosage: 60 U, EACH MORNING
     Dates: start: 20000101
  2. HUMULIN N [Suspect]
     Dosage: 50 U, EACH EVENING
     Dates: start: 20000101
  3. HUMULIN N [Suspect]
     Dates: start: 20000101
  4. GLUCOPHAGE [Concomitant]
     Dosage: UNK, 2/D

REACTIONS (2)
  - AMPUTATION [None]
  - BLOOD GLUCOSE INCREASED [None]
